FAERS Safety Report 9964497 (Version 3)
Quarter: 2014Q1

REPORT INFORMATION
  Report Type: Report from Study
  Country: IT (occurrence: IT)
  Receive Date: 20140305
  Receipt Date: 20140327
  Transmission Date: 20141002
  Serious: Yes (Other)
  Sender: FDA-Public Use
  Company Number: IT-PFIZER INC-2012152102

PATIENT
  Age: 45 Year
  Sex: Female
  Weight: 52.3 kg

DRUGS (2)
  1. BOSUTINIB [Suspect]
     Indication: CHRONIC MYELOID LEUKAEMIA
     Dosage: 500 MG, 1X/DAY
     Route: 048
     Dates: start: 20111109, end: 20120620
  2. LANSOPRAZOLE [Concomitant]
     Indication: DYSPEPSIA
     Dosage: 15 MG, 1X/DAY
     Route: 048
     Dates: start: 20111116

REACTIONS (1)
  - Vitreous haemorrhage [Recovered/Resolved]
